FAERS Safety Report 5314677-X (Version None)
Quarter: 2007Q2

REPORT INFORMATION
  Report Type: 
  Country: None (occurrence: None)
  Receive Date: 20070426
  Receipt Date: 20070417
  Transmission Date: 20071010
  Serious: Yes (Other)
  Sender: FDA-Public Use
  Company Number: SPV1-2007-02171

PATIENT
  Age: 9 Year
  Sex: Male
  Weight: 22.7 kg

DRUGS (2)
  1. ADDERALL XR 10 [Suspect]
     Indication: ATTENTION DEFICIT/HYPERACTIVITY DISORDER
     Dosage: 15 MG, 1X/DAY; QD
     Dates: start: 20041001
  2. MULTIVITAMINS W/FLUORIDE (SODIUM FLUORIDE, VITAMINS NOS) [Concomitant]

REACTIONS (4)
  - DILATATION ATRIAL [None]
  - ELECTROCARDIOGRAM QT PROLONGED [None]
  - HEART RATE INCREASED [None]
  - VENTRICULAR HYPERTROPHY [None]
